FAERS Safety Report 19453372 (Version 1)
Quarter: 2021Q2

REPORT INFORMATION
  Report Type: Spontaneous
  Country: US (occurrence: US)
  Receive Date: 20210623
  Receipt Date: 20210623
  Transmission Date: 20210717
  Serious: Yes (Other)
  Sender: FDA-Public Use
  Company Number: US-GW PHARMA-202106USGW02977

PATIENT

DRUGS (2)
  1. ONFI [Concomitant]
     Active Substance: CLOBAZAM
     Indication: PRODUCT USED FOR UNKNOWN INDICATION
     Dosage: UNK
     Route: 065
  2. EPIDIOLEX [Suspect]
     Active Substance: CANNABIDIOL
     Indication: EPILEPSY
     Dosage: 50 MILLIGRAM, BID  (FIRST SHIPPED ON 18 FEB 2020)
     Route: 048
     Dates: start: 202002

REACTIONS (3)
  - Dyskinesia [Unknown]
  - Behaviour disorder [Unknown]
  - Head banging [Unknown]
